FAERS Safety Report 24159296 (Version 2)
Quarter: 2024Q3

REPORT INFORMATION
  Report Type: Spontaneous
  Country: JP (occurrence: JP)
  Receive Date: 20240731
  Receipt Date: 20240829
  Transmission Date: 20241017
  Serious: Yes (Hospitalization)
  Sender: EISAI
  Company Number: JP-Eisai-202405241_FYC_P_1

PATIENT
  Age: 6 Year
  Sex: Female
  Weight: 20 kg

DRUGS (3)
  1. FYCOMPA [Suspect]
     Active Substance: PERAMPANEL
     Indication: Epilepsy
     Route: 048
     Dates: start: 20240319, end: 202403
  2. VALPROATE SODIUM [Concomitant]
     Active Substance: VALPROATE SODIUM
     Indication: Epilepsy
     Route: 048
  3. CLOBAZAM [Concomitant]
     Active Substance: CLOBAZAM
     Indication: Product used for unknown indication

REACTIONS (7)
  - Somnolence [Recovered/Resolved]
  - Hypophagia [Recovered/Resolved]
  - Lip dry [Unknown]
  - Peripheral coldness [Unknown]
  - Dizziness [Unknown]
  - Irritability [Unknown]
  - Self-destructive behaviour [Unknown]

NARRATIVE: CASE EVENT DATE: 20240319
